FAERS Safety Report 25934599 (Version 1)
Quarter: 2025Q4

REPORT INFORMATION
  Report Type: Spontaneous
  Country: US (occurrence: None)
  Receive Date: 20251016
  Receipt Date: 20251016
  Transmission Date: 20260117
  Serious: Yes (Other)
  Sender: FDA-CTU
  Company Number: None

PATIENT
  Age: 63 Year
  Sex: Male
  Weight: 88.2 kg

DRUGS (11)
  1. BUPROPION [Suspect]
     Active Substance: BUPROPION
     Indication: Anxiety
     Dates: start: 20220901
  2. BUPROPION [Suspect]
     Active Substance: BUPROPION
     Indication: Depression
  3. LOSARTAN [Concomitant]
     Active Substance: LOSARTAN
  4. taladafil [Concomitant]
  5. XIIDRA [Concomitant]
     Active Substance: LIFITEGRAST
  6. VITAMIN D2 [Concomitant]
     Active Substance: ERGOCALCIFEROL
  7. VITAMIN B12 [Concomitant]
     Active Substance: CYANOCOBALAMIN
  8. MAGNESIUM [Concomitant]
     Active Substance: MAGNESIUM
  9. COENZYME Q10 [Concomitant]
     Active Substance: DIETARY SUPPLEMENT\UBIDECARENONE
  10. omega3 [Concomitant]
  11. L-GLUTAMINE [Concomitant]
     Active Substance: GLUTAMINE

REACTIONS (2)
  - Tremor [None]
  - Essential tremor [None]

NARRATIVE: CASE EVENT DATE: 20230101
